FAERS Safety Report 12299787 (Version 1)
Quarter: 2016Q2

REPORT INFORMATION
  Report Type: Spontaneous
  Country: CH (occurrence: CH)
  Receive Date: 20160425
  Receipt Date: 20160425
  Transmission Date: 20160815
  Serious: Yes (Hospitalization)
  Sender: FDA-Public Use
  Company Number: CH-ROCHE-1746781

PATIENT
  Age: 51 Year
  Sex: Male

DRUGS (5)
  1. ZYPREXA [Suspect]
     Active Substance: OLANZAPINE
     Indication: ANXIETY
     Route: 048
  2. FLOXYFRAL [Suspect]
     Active Substance: FLUVOXAMINE
     Indication: DEPRESSION
     Route: 041
     Dates: start: 20151127
  3. MOTILIUM [Concomitant]
     Active Substance: DOMPERIDONE
     Route: 048
     Dates: end: 201602
  4. RIVOTRIL [Suspect]
     Active Substance: CLONAZEPAM
     Indication: PRODUCT USED FOR UNKNOWN INDICATION
     Route: 048
  5. LITHIOFOR [Suspect]
     Active Substance: LITHIUM SULFATE
     Indication: PRODUCT USED FOR UNKNOWN INDICATION
     Route: 048

REACTIONS (1)
  - Dysphagia [Recovering/Resolving]

NARRATIVE: CASE EVENT DATE: 20160203
